FAERS Safety Report 24359361 (Version 3)
Quarter: 2024Q4

REPORT INFORMATION
  Report Type: Spontaneous
  Country: US (occurrence: US)
  Receive Date: 20240924
  Receipt Date: 20241007
  Transmission Date: 20250115
  Serious: No
  Sender: SANOFI AVENTIS
  Company Number: US-SANOFI-02214980

PATIENT
  Age: 11 Year
  Sex: Male
  Weight: 35.64 kg

DRUGS (1)
  1. DUPIXENT [Suspect]
     Active Substance: DUPILUMAB
     Indication: Eosinophilic oesophagitis
     Dosage: 300 MG, QOW
     Route: 065
     Dates: start: 20240617

REACTIONS (3)
  - Headache [Unknown]
  - Injection site haemorrhage [Unknown]
  - Device use issue [Unknown]

NARRATIVE: CASE EVENT DATE: 20240908
